FAERS Safety Report 5977011-8 (Version None)
Quarter: 2008Q4

REPORT INFORMATION
  Report Type: 
  Country: None (occurrence: None)
  Receive Date: 20081126
  Receipt Date: 20081114
  Transmission Date: 20090506
  Serious: Yes (Death)
  Sender: FDA-Public Use
  Company Number: US025047

PATIENT
  Age: 80 Year
  Sex: Male

DRUGS (1)
  1. ACTIQ [Suspect]
     Indication: BACK PAIN
     Dosage: 1600 UG BUCCAL
     Route: 002

REACTIONS (2)
  - CARDIAC DISORDER [None]
  - RENAL FAILURE [None]
